FAERS Safety Report 7096873-7 (Version None)
Quarter: 2010Q4

REPORT INFORMATION
  Report Type: 
  Country: None (occurrence: None)
  Receive Date: 20101111
  Receipt Date: 20100119
  Transmission Date: 20110411
  Serious: No
  Sender: FDA-Public Use
  Company Number: US-KINGPHARMUSA00001-K201000072

PATIENT
  Age: 67 Year
  Sex: Female
  Weight: 49.887 kg

DRUGS (7)
  1. FLECTOR [Suspect]
     Indication: TENDONITIS
     Dosage: 1 PATCH, SINGLE
     Route: 061
     Dates: start: 20100116, end: 20100116
  2. FLECTOR [Suspect]
     Dosage: 0.5 PATCH, EVERY 12 HRS
     Route: 061
     Dates: start: 20100121
  3. CORTICOSTEROID NOS [Suspect]
     Indication: TENDONITIS
     Dosage: UNK
     Route: 014
     Dates: start: 20100116, end: 20100116
  4. COPAXONE [Concomitant]
     Indication: MULTIPLE SCLEROSIS
     Dosage: 20 MG, QD
     Route: 058
  5. NEURONTIN [Concomitant]
     Indication: MULTIPLE SCLEROSIS
     Dosage: 400 MG, BID
     Route: 048
  6. PRILOSEC [Concomitant]
     Indication: ULCER
     Dosage: UNK
  7. XANAX [Concomitant]
     Dosage: 0.25 MG, PRN
     Route: 048

REACTIONS (5)
  - ABDOMINAL PAIN UPPER [None]
  - ARRHYTHMIA [None]
  - GASTROINTESTINAL PAIN [None]
  - HEADACHE [None]
  - OEDEMA PERIPHERAL [None]
